FAERS Safety Report 13445658 (Version 2)
Quarter: 2017Q2

REPORT INFORMATION
  Report Type: Spontaneous
  Country: IT (occurrence: IT)
  Receive Date: 20170415
  Receipt Date: 20170428
  Transmission Date: 20170830
  Serious: Yes (Hospitalization, Other)
  Sender: FDA-Public Use
  Company Number: IT-MYLANLABS-2017M1022630

PATIENT

DRUGS (1)
  1. ALPRAZOLAM. [Suspect]
     Active Substance: ALPRAZOLAM
     Indication: PRODUCT USED FOR UNKNOWN INDICATION
     Dosage: 20 ML, TOTAL
     Route: 048
     Dates: start: 20170402, end: 20170402

REACTIONS (4)
  - Intentional self-injury [Unknown]
  - Sedation [Unknown]
  - Overdose [Unknown]
  - Ataxia [Unknown]

NARRATIVE: CASE EVENT DATE: 20170402
